FAERS Safety Report 5898929-0 (Version None)
Quarter: 2008Q3

REPORT INFORMATION
  Report Type: 
  Country: None (occurrence: None)
  Receive Date: 20080925
  Receipt Date: 20080917
  Transmission Date: 20090109
  Serious: Yes (Hospitalization)
  Sender: FDA-Public Use
  Company Number: US-BAXTER-2008BH009824

PATIENT
  Sex: Male

DRUGS (12)
  1. DIANEAL [Suspect]
     Indication: RENAL FAILURE CHRONIC
     Dosage: DOSE UNIT:UNKNOWN
     Route: 033
     Dates: start: 20070126
  2. PROCRIT [Concomitant]
     Indication: DRUG USE FOR UNKNOWN INDICATION
     Route: 058
  3. NOVOLOG [Concomitant]
     Indication: DRUG USE FOR UNKNOWN INDICATION
     Route: 058
  4. NEXIUM [Concomitant]
     Indication: DRUG USE FOR UNKNOWN INDICATION
  5. LOPID [Concomitant]
     Indication: DRUG USE FOR UNKNOWN INDICATION
  6. LANTUS [Concomitant]
     Indication: DRUG USE FOR UNKNOWN INDICATION
  7. NEPHROCAPS [Concomitant]
     Indication: DRUG USE FOR UNKNOWN INDICATION
  8. ASPIRIN [Concomitant]
     Indication: DRUG USE FOR UNKNOWN INDICATION
  9. ZOCOR [Concomitant]
     Indication: DRUG USE FOR UNKNOWN INDICATION
  10. RENAGEL [Concomitant]
     Indication: DRUG USE FOR UNKNOWN INDICATION
  11. PHOSLO [Concomitant]
     Indication: DRUG USE FOR UNKNOWN INDICATION
  12. HECTOROL [Concomitant]

REACTIONS (2)
  - HYPOGLYCAEMIA [None]
  - HYPOVOLAEMIA [None]
